FAERS Safety Report 18561476 (Version 1)
Quarter: 2020Q4

REPORT INFORMATION
  Report Type: Report from Study
  Country: None (occurrence: US)
  Receive Date: 20201201
  Receipt Date: 20201201
  Transmission Date: 20210114
  Serious: Yes (Other)
  Sender: FDA-Public Use
  Company Number: US-ABBVIE-20K-163-3666289-00

PATIENT
  Sex: Male

DRUGS (1)
  1. HUMIRA [Suspect]
     Active Substance: ADALIMUMAB
     Indication: RHEUMATOID ARTHRITIS
     Route: 058
     Dates: start: 20200219

REACTIONS (9)
  - Loss of personal independence in daily activities [Unknown]
  - Night sweats [Unknown]
  - Dry eye [Unknown]
  - Single functional kidney [Unknown]
  - Blood creatinine abnormal [Unknown]
  - Tendonitis [Unknown]
  - Headache [Recovered/Resolved]
  - Glomerular filtration rate abnormal [Unknown]
  - Renal impairment [Unknown]

NARRATIVE: CASE EVENT DATE: 2020
